FAERS Safety Report 8380880-8 (Version None)
Quarter: 2012Q2

REPORT INFORMATION
  Report Type: 
  Country: None (occurrence: None)
  Receive Date: 20120523
  Receipt Date: 20120515
  Transmission Date: 20120825
  Serious: Yes (Hospitalization, Disabling, Other)
  Sender: FDA-Public Use
  Company Number: US-MERCK-1109USA02800

PATIENT
  Age: 56 Year
  Sex: Female

DRUGS (5)
  1. FOSAMAX [Suspect]
     Indication: OSTEOPENIA
     Route: 048
     Dates: start: 20020101, end: 20040501
  2. FOSAMAX [Suspect]
     Route: 048
     Dates: start: 20070601, end: 20090601
  3. FOSAMAX [Suspect]
     Route: 048
     Dates: start: 20070601, end: 20090601
  4. FOSAMAX PLUS D [Suspect]
     Indication: OSTEOPENIA
     Route: 048
     Dates: start: 20040601, end: 20070501
  5. FOSAMAX [Suspect]
     Indication: OSTEOPOROSIS
     Route: 048
     Dates: start: 20020101, end: 20040501

REACTIONS (9)
  - ENDODONTIC PROCEDURE [None]
  - HERPES ZOSTER [None]
  - DENTAL CARIES [None]
  - FEMUR FRACTURE [None]
  - FRACTURE DELAYED UNION [None]
  - ADVERSE EVENT [None]
  - SYSTEMIC LUPUS ERYTHEMATOSUS [None]
  - INFECTION [None]
  - LOW TURNOVER OSTEOPATHY [None]
